FAERS Safety Report 5701083-9 (Version None)
Quarter: 2008Q2

REPORT INFORMATION
  Report Type: 
  Country: None (occurrence: None)
  Receive Date: 20080410
  Receipt Date: 20080408
  Transmission Date: 20081010
  Serious: Yes (Death, Hospitalization, Other)
  Sender: FDA-Public Use
  Company Number: GB-WYE-G01372008

PATIENT
  Sex: Male

DRUGS (3)
  1. TORISEL [Suspect]
     Indication: RENAL CELL CARCINOMA
     Dosage: UNKNOWN
     Dates: start: 20080101
  2. SUNITINIB MALATE [Concomitant]
     Dosage: UNKNOWN
     Dates: start: 20070401, end: 20070901
  3. ESCITALOPRAM OXALATE [Suspect]
     Dosage: UNKNOWN
     Dates: start: 20080201

REACTIONS (6)
  - DISEASE PROGRESSION [None]
  - FATIGUE [None]
  - HYPERKALAEMIA [None]
  - HYPONATRAEMIA [None]
  - MALAISE [None]
  - MUCOSAL INFLAMMATION [None]
